FAERS Safety Report 10588489 (Version 2)
Quarter: 2014Q4

REPORT INFORMATION
  Report Type: Report from Study
  Country: DE (occurrence: DE)
  Receive Date: 20141117
  Receipt Date: 20141117
  Transmission Date: 20150529
  Serious: Yes (Hospitalization, Other)
  Sender: FDA-Public Use
  Company Number: DE-ROCHE-1477209

PATIENT
  Age: 46 Year
  Sex: Female
  Weight: 68 kg

DRUGS (50)
  1. HERCEPTIN [Concomitant]
     Active Substance: TRASTUZUMAB
     Indication: BREAST CANCER METASTATIC
     Route: 042
     Dates: start: 20140305
  2. ALOXI [Concomitant]
     Active Substance: PALONOSETRON HYDROCHLORIDE
     Route: 042
     Dates: start: 20140305, end: 20140305
  3. ALOXI [Concomitant]
     Active Substance: PALONOSETRON HYDROCHLORIDE
     Route: 042
     Dates: start: 20140326, end: 20140326
  4. ALOXI [Concomitant]
     Active Substance: PALONOSETRON HYDROCHLORIDE
     Route: 042
     Dates: start: 20140519, end: 20140519
  5. APREPITANT. [Concomitant]
     Active Substance: APREPITANT
     Indication: NAUSEA
     Route: 048
     Dates: start: 20140212, end: 20140212
  6. APREPITANT. [Concomitant]
     Active Substance: APREPITANT
     Route: 048
     Dates: start: 20140424, end: 20140425
  7. APREPITANT. [Concomitant]
     Active Substance: APREPITANT
     Route: 048
     Dates: start: 20140610, end: 20140610
  8. ONDANSETRON [Concomitant]
     Active Substance: ONDANSETRON
     Indication: NAUSEA
     Dosage: AS REQUIRED
     Route: 048
     Dates: start: 20140515
  9. VERGENTAN [Concomitant]
     Route: 042
     Dates: start: 20140610, end: 20140610
  10. NEULASTA [Concomitant]
     Active Substance: PEGFILGRASTIM
     Route: 058
     Dates: start: 20140520, end: 20140520
  11. ALOXI [Concomitant]
     Active Substance: PALONOSETRON HYDROCHLORIDE
     Route: 042
     Dates: start: 20140812, end: 20140812
  12. APREPITANT. [Concomitant]
     Active Substance: APREPITANT
     Route: 048
     Dates: start: 20140213, end: 20140214
  13. VERGENTAN [Concomitant]
     Route: 042
     Dates: start: 20140812, end: 20140812
  14. HERCEPTIN [Concomitant]
     Active Substance: TRASTUZUMAB
     Indication: HER-2 POSITIVE BREAST CANCER
     Dosage: LOADING DOSE ON DAY 1 OF CYCLE 1 AS PER PROTOCOL
     Route: 042
     Dates: start: 20140212, end: 20140212
  15. DOCETAXEL. [Concomitant]
     Active Substance: DOCETAXEL
     Indication: BREAST CANCER METASTATIC
     Route: 042
     Dates: start: 20140305, end: 201406
  16. NEULASTA [Concomitant]
     Active Substance: PEGFILGRASTIM
     Route: 058
     Dates: start: 20140327, end: 20140327
  17. ALOXI [Concomitant]
     Active Substance: PALONOSETRON HYDROCHLORIDE
     Route: 042
     Dates: start: 20140610, end: 20140610
  18. APREPITANT. [Concomitant]
     Active Substance: APREPITANT
     Route: 048
     Dates: start: 20140306, end: 20140307
  19. APREPITANT. [Concomitant]
     Active Substance: APREPITANT
     Route: 048
     Dates: start: 20140611, end: 20140612
  20. VERGENTAN [Concomitant]
     Route: 042
     Dates: start: 20140925, end: 20140925
  21. NEULASTA [Concomitant]
     Active Substance: PEGFILGRASTIM
     Route: 058
     Dates: start: 20140611, end: 20140611
  22. ALOXI [Concomitant]
     Active Substance: PALONOSETRON HYDROCHLORIDE
     Route: 042
     Dates: start: 20140423, end: 20140423
  23. ALOXI [Concomitant]
     Active Substance: PALONOSETRON HYDROCHLORIDE
     Route: 042
     Dates: start: 20140925, end: 20140925
  24. APREPITANT. [Concomitant]
     Active Substance: APREPITANT
     Route: 048
     Dates: start: 20140326, end: 20140326
  25. APREPITANT. [Concomitant]
     Active Substance: APREPITANT
     Route: 048
     Dates: start: 20140423, end: 20140423
  26. VERGENTAN [Concomitant]
     Route: 042
     Dates: start: 20140423, end: 20140423
  27. NEULASTA [Concomitant]
     Active Substance: PEGFILGRASTIM
     Indication: NEUTROPENIA
     Route: 058
     Dates: start: 20140213, end: 20140213
  28. NEULASTA [Concomitant]
     Active Substance: PEGFILGRASTIM
     Route: 058
     Dates: start: 20140306, end: 20140306
  29. ALOXI [Concomitant]
     Active Substance: PALONOSETRON HYDROCHLORIDE
     Route: 042
     Dates: start: 20140701, end: 20140701
  30. APREPITANT. [Concomitant]
     Active Substance: APREPITANT
     Route: 048
     Dates: start: 20140327, end: 20140328
  31. APREPITANT. [Concomitant]
     Active Substance: APREPITANT
     Route: 048
     Dates: start: 20140519, end: 20140519
  32. VERGENTAN [Concomitant]
     Route: 042
     Dates: start: 20140701, end: 20140701
  33. NEULASTA [Concomitant]
     Active Substance: PEGFILGRASTIM
     Route: 058
     Dates: start: 20140424, end: 20140424
  34. ALOXI [Concomitant]
     Active Substance: PALONOSETRON HYDROCHLORIDE
     Route: 042
     Dates: start: 20140722, end: 20140722
  35. VERGENTAN [Concomitant]
     Indication: NAUSEA
     Route: 042
     Dates: start: 20140212, end: 20140212
  36. VERGENTAN [Concomitant]
     Route: 042
     Dates: start: 20140519, end: 20140519
  37. VERGENTAN [Concomitant]
     Route: 042
     Dates: start: 20141016, end: 20141016
  38. PERTUZUMAB [Suspect]
     Active Substance: PERTUZUMAB
     Indication: BREAST CANCER METASTATIC
     Dosage: MAINTENANCE DOSE, CYCLE AS PER PROTOCOL
     Route: 042
     Dates: start: 20140305
  39. DOCETAXEL. [Concomitant]
     Active Substance: DOCETAXEL
     Indication: HER-2 POSITIVE BREAST CANCER
     Route: 042
     Dates: start: 20140212, end: 20140212
  40. ALOXI [Concomitant]
     Active Substance: PALONOSETRON HYDROCHLORIDE
     Route: 042
     Dates: start: 20141016, end: 20141016
  41. APREPITANT. [Concomitant]
     Active Substance: APREPITANT
     Route: 048
     Dates: start: 20140520, end: 20140521
  42. VERGENTAN [Concomitant]
     Route: 042
     Dates: start: 20140305, end: 20140305
  43. VERGENTAN [Concomitant]
     Route: 042
     Dates: start: 20140722, end: 20140722
  44. PERTUZUMAB [Suspect]
     Active Substance: PERTUZUMAB
     Indication: HER-2 POSITIVE BREAST CANCER
     Dosage: LOADING DOSE CYCLE 1, DAY 1 AS  PER PROTOCOL
     Route: 042
     Dates: start: 20140212, end: 20140212
  45. ALOXI [Concomitant]
     Active Substance: PALONOSETRON HYDROCHLORIDE
     Indication: NAUSEA
     Route: 042
     Dates: start: 20140212, end: 20140212
  46. ALOXI [Concomitant]
     Active Substance: PALONOSETRON HYDROCHLORIDE
     Route: 042
     Dates: start: 20140904, end: 20140904
  47. APREPITANT. [Concomitant]
     Active Substance: APREPITANT
     Route: 048
     Dates: start: 20140305, end: 20140305
  48. VERGENTAN [Concomitant]
     Route: 042
     Dates: start: 20140326, end: 20140326
  49. VERGENTAN [Concomitant]
     Route: 042
     Dates: start: 20140519, end: 20140519
  50. VERGENTAN [Concomitant]
     Route: 042
     Dates: start: 20140904, end: 20140904

REACTIONS (5)
  - Dizziness [Unknown]
  - General physical health deterioration [Recovered/Resolved with Sequelae]
  - Metastases to central nervous system [Unknown]
  - Brain oedema [Unknown]
  - Confusional state [Recovered/Resolved with Sequelae]

NARRATIVE: CASE EVENT DATE: 20141015
